FAERS Safety Report 9628307 (Version 1)
Quarter: 2013Q4

REPORT INFORMATION
  Report Type: Spontaneous
  Country: ES (occurrence: ES)
  Receive Date: 20131017
  Receipt Date: 20131017
  Transmission Date: 20140711
  Serious: Yes (Death)
  Sender: FDA-Public Use
  Company Number: ES-BRISTOL-MYERS SQUIBB COMPANY-19594159

PATIENT
  Sex: 0

DRUGS (6)
  1. ABILIFY [Suspect]
     Route: 048
     Dates: start: 20130801, end: 20130819
  2. INVEGA [Concomitant]
  3. PLENUR [Concomitant]
  4. TOPAMAX [Concomitant]
  5. RIVOTRIL [Concomitant]
  6. EUTIROX [Concomitant]

REACTIONS (3)
  - Acute myocardial infarction [Fatal]
  - Dizziness [Not Recovered/Not Resolved]
  - Nausea [Not Recovered/Not Resolved]
